FAERS Safety Report 4602674-9 (Version None)
Quarter: 2005Q1

REPORT INFORMATION
  Report Type: 
  Country: None (occurrence: None)
  Receive Date: 20050303
  Receipt Date: 20050225
  Transmission Date: 20050727
  Serious: Yes (Hospitalization)
  Sender: FDA-Public Use
  Company Number: 230671K05USA

PATIENT
  Age: 58 Year
  Sex: Male

DRUGS (1)
  1. REBIF [Suspect]
     Indication: MULTIPLE SCLEROSIS
     Dosage: 8.8 MCG, 3 IN 1 WEEKS, SUBCUTANEOUS
     Route: 058
     Dates: start: 20050221, end: 20050201

REACTIONS (6)
  - BLOOD PRESSURE DECREASED [None]
  - EYE PAIN [None]
  - INFECTION [None]
  - LABORATORY TEST INTERFERENCE [None]
  - ORAL INTAKE REDUCED [None]
  - TREATMENT NONCOMPLIANCE [None]
